FAERS Safety Report 5345775-2 (Version None)
Quarter: 2007Q2

REPORT INFORMATION
  Report Type: 
  Country: None (occurrence: None)
  Receive Date: 20070601
  Receipt Date: 20070524
  Transmission Date: 20071010
  Serious: Yes (Hospitalization, Other)
  Sender: FDA-Public Use
  Company Number: 2006SP006481

PATIENT
  Age: 48 Year
  Sex: Female
  Weight: 62 kg

DRUGS (12)
  1. TEMOZOLOMIDE [Suspect]
     Indication: GLIOMA
     Dosage: 120 MG; QD; PO
     Route: 048
     Dates: start: 20060411, end: 20070117
  2. FORTECORTIN (CON.) [Concomitant]
  3. SOLTRIM (CON.) [Concomitant]
  4. DIAZEPAM (CON.) [Concomitant]
  5. ANAGASTRA (CON.) [Concomitant]
  6. VENTOLIN (CON.) [Concomitant]
  7. ATROVENT (CON.) [Concomitant]
  8. MICOSTATIN (CON.) [Concomitant]
  9. FLUMIL /00082801/ (CON.) [Concomitant]
  10. NEOSIDANTOINA (CON.) [Concomitant]
  11. LORAZEPAM (CON.) [Concomitant]
  12. LEXATIN (CON.) [Concomitant]

REACTIONS (10)
  - ASTHENIA [None]
  - CANDIDIASIS [None]
  - COUGH [None]
  - DRUG EFFECT DECREASED [None]
  - OESOPHAGEAL CANDIDIASIS [None]
  - PANCYTOPENIA [None]
  - PNEUMOCYSTIS JIROVECI INFECTION [None]
  - RESPIRATORY FAILURE [None]
  - RESPIRATORY TRACT INFECTION [None]
  - SOMNOLENCE [None]
